FAERS Safety Report 10007950 (Version 1)
Quarter: 2014Q1

REPORT INFORMATION
  Report Type: Spontaneous
  Country: DE (occurrence: DE)
  Receive Date: 20140313
  Receipt Date: 20140313
  Transmission Date: 20141002
  Serious: Yes (Congenital Anomaly, Other)
  Sender: FDA-Public Use
  Company Number: GXKR2014DE001212

PATIENT
  Sex: 0

DRUGS (5)
  1. SERTRALINE [Suspect]
     Indication: ANXIETY DISORDER
     Dosage: 100-125 MG/DAY
     Route: 064
     Dates: start: 20120120, end: 20121015
  2. ZOPICLONE [Suspect]
     Indication: SLEEP DISORDER
     Dosage: 7.5 [MG/D ]/ ON DEMAND (GW 0-7)
     Route: 064
     Dates: start: 20120120
  3. OPIPRAMOL [Suspect]
     Indication: DEPRESSION
     Dosage: 50 [MG/D ] (GW 0-7)
     Route: 064
     Dates: start: 20120120
  4. CENTRUM MATERNA [Concomitant]
     Indication: PROPHYLAXIS OF NEURAL TUBE DEFECT
     Dosage: 0.4 [MG/D ] (GW 6-38.3)
     Route: 064
     Dates: start: 20120302, end: 20121015
  5. NASEN TROPFEN K [Concomitant]
     Indication: SUBSTANCE ABUSER
     Route: 064
     Dates: start: 20120120, end: 20121015

REACTIONS (2)
  - Kidney duplex [Not Recovered/Not Resolved]
  - Neonatal respiratory distress syndrome [Recovered/Resolved]
